FAERS Safety Report 23210868 (Version 2)
Quarter: 2024Q1

REPORT INFORMATION
  Report Type: Spontaneous
  Country: IN (occurrence: IN)
  Receive Date: 20231121
  Receipt Date: 20240220
  Transmission Date: 20240410
  Serious: Yes (Death, Hospitalization, Other)
  Sender: FDA-Public Use
  Company Number: IN-PFIZER INC-PV202300172994

PATIENT
  Age: 75 Year
  Sex: Male

DRUGS (1)
  1. LORLATINIB [Suspect]
     Active Substance: LORLATINIB
     Dosage: 100 MG, OD
     Route: 048
     Dates: start: 20231005, end: 20231009

REACTIONS (3)
  - Death [Fatal]
  - Delirium [Not Recovered/Not Resolved]
  - Altered state of consciousness [Not Recovered/Not Resolved]
